FAERS Safety Report 22188562 (Version 1)
Quarter: 2023Q2

REPORT INFORMATION
  Report Type: Other
  Country: US (occurrence: US)
  Receive Date: 20230409
  Receipt Date: 20230409
  Transmission Date: 20230722
  Serious: Yes (Death)
  Sender: FDA-Public Use
  Company Number: US-ALVOGEN-2023090120

PATIENT
  Age: 53 Year
  Sex: Female

DRUGS (3)
  1. AMPHETAMINE [Suspect]
     Active Substance: AMPHETAMINE
     Indication: Suicide attempt
     Route: 065
  2. PENTOBARBITAL [Suspect]
     Active Substance: PENTOBARBITAL
     Indication: Suicide attempt
     Route: 065
  3. METOPROLOL [Suspect]
     Active Substance: METOPROLOL
     Indication: Suicide attempt
     Route: 065

REACTIONS (1)
  - Completed suicide [Fatal]
